FAERS Safety Report 10543787 (Version 1)
Quarter: 2014Q4

REPORT INFORMATION
  Report Type: Spontaneous
  Country: DE (occurrence: JP)
  Receive Date: 20141027
  Receipt Date: 20141027
  Transmission Date: 20150529
  Serious: Yes (Other)
  Sender: FDA-Public Use
  Company Number: JP-FRI-1000071828

PATIENT
  Age: 67 Year
  Sex: Male
  Weight: 36 kg

DRUGS (15)
  1. MEMANTINE [Suspect]
     Active Substance: MEMANTINE
     Indication: AGGRESSION
     Dosage: 5 MG
     Route: 048
     Dates: start: 20131211, end: 20131217
  2. MEMANTINE [Suspect]
     Active Substance: MEMANTINE
     Dosage: 15 MG
     Route: 048
     Dates: start: 20131225, end: 20140107
  3. MEMANTINE [Suspect]
     Active Substance: MEMANTINE
     Dosage: 15 MG
     Route: 048
     Dates: start: 20140710, end: 20140713
  4. MEMANTINE [Suspect]
     Active Substance: MEMANTINE
     Dosage: 5 MG
     Route: 048
     Dates: start: 20140723, end: 20140730
  5. CARBAMAZEPINE. [Concomitant]
     Active Substance: CARBAMAZEPINE
  6. ZOPICLONE [Concomitant]
     Active Substance: ZOPICLONE
     Dates: start: 20131129
  7. BROTIZOLAM [Concomitant]
     Active Substance: BROTIZOLAM
     Dates: start: 20131127
  8. MEMANTINE [Suspect]
     Active Substance: MEMANTINE
     Indication: AGGRESSION
     Dosage: 20 MG
     Route: 048
     Dates: start: 20140108, end: 20140709
  9. ALDACTONE [Concomitant]
     Active Substance: SPIRONOLACTONE
     Dates: start: 20131127
  10. PAROXETINE [Concomitant]
     Active Substance: PAROXETINE\PAROXETINE HYDROCHLORIDE
     Dates: start: 20131127
  11. MEMANTINE [Suspect]
     Active Substance: MEMANTINE
     Dosage: 10 MG
     Route: 048
     Dates: start: 20140714, end: 20140722
  12. MEMANTINE [Suspect]
     Active Substance: MEMANTINE
     Indication: MENTAL DISABILITY
     Dosage: 10 MG
     Route: 048
     Dates: start: 20131218, end: 20131224
  13. JU-KAMA [Concomitant]
     Active Substance: MAGNESIUM OXIDE
     Dates: start: 20140528
  14. THYRADIN S [Concomitant]
     Active Substance: LEVOTHYROXINE SODIUM
     Dates: start: 20131127
  15. MEMANTINE [Suspect]
     Active Substance: MEMANTINE
     Indication: MENTAL DISABILITY

REACTIONS (2)
  - Gastrointestinal hypomotility [Recovering/Resolving]
  - Abdominal distension [Recovering/Resolving]

NARRATIVE: CASE EVENT DATE: 20140705
